FAERS Safety Report 8494954-4 (Version None)
Quarter: 2012Q3

REPORT INFORMATION
  Report Type: 
  Country: None (occurrence: None)
  Receive Date: 20120709
  Receipt Date: 20120622
  Transmission Date: 20120928
  Serious: No
  Sender: FDA-Public Use
  Company Number: US-ASTRAZENECA-2012SE42827

PATIENT
  Sex: Female

DRUGS (5)
  1. NEXIUM [Suspect]
     Indication: GASTROOESOPHAGEAL REFLUX DISEASE
     Route: 048
     Dates: start: 20020101, end: 20030101
  2. NEXIUM [Suspect]
     Route: 048
     Dates: start: 20030101
  3. NEXIUM [Suspect]
     Route: 048
  4. PRILOSEC [Suspect]
     Indication: GASTROOESOPHAGEAL REFLUX DISEASE
     Route: 048
     Dates: start: 19970101
  5. PROPULSID [Concomitant]

REACTIONS (4)
  - OESOPHAGEAL PAIN [None]
  - OFF LABEL USE [None]
  - PAIN [None]
  - EATING DISORDER [None]
